FAERS Safety Report 8667068 (Version 2)
Quarter: 2013Q3

REPORT INFORMATION
  Report Type: Report from Study
  Country: ES (occurrence: ES)
  Receive Date: 20120717
  Receipt Date: 20130724
  Transmission Date: 20140515
  Serious: Yes (Hospitalization)
  Sender: FDA-Public Use
  Company Number: ES-BIOGENIDEC-2012BI024224

PATIENT
  Age: 37 Year
  Sex: Female

DRUGS (7)
  1. TYSABRI [Suspect]
     Indication: MULTIPLE SCLEROSIS
     Route: 042
     Dates: start: 20080303, end: 20120410
  2. OMEPRAZOLE [Concomitant]
  3. ENOXAPARIN [Concomitant]
  4. DEXKETOPROFEN [Concomitant]
  5. METAMIZOLE [Concomitant]
  6. PARACETAMOL [Concomitant]
  7. PANTOPRAZOLE [Concomitant]

REACTIONS (1)
  - Uterine cyst [Recovered/Resolved]
